FAERS Safety Report 9791804 (Version 1)
Quarter: 2014Q1

REPORT INFORMATION
  Report Type: Spontaneous
  Country: US (occurrence: US)
  Receive Date: 20140102
  Receipt Date: 20140102
  Transmission Date: 20141002
  Serious: Yes (Death, Hospitalization)
  Sender: FDA-Public Use
  Company Number: US-JNJFOC-20131217843

PATIENT
  Age: 61 Year
  Sex: Male
  Weight: 90.72 kg

DRUGS (8)
  1. XARELTO [Suspect]
     Indication: DEEP VEIN THROMBOSIS
     Route: 048
     Dates: start: 201312, end: 201312
  2. NITROGLYCERIN [Concomitant]
     Route: 060
  3. LISINOPRIL [Concomitant]
     Route: 048
  4. MELOXICAM [Concomitant]
     Route: 048
  5. AMBIEN [Concomitant]
     Route: 048
  6. PERCOCET [Concomitant]
     Dosage: 5/235/TABLET
     Route: 048
  7. PANTOPRAZOLE [Concomitant]
     Route: 048
  8. ONDANSETRON HCL [Concomitant]
     Route: 048

REACTIONS (1)
  - Cerebrovascular accident [Fatal]
